APPROVED DRUG PRODUCT: FORADIL
Active Ingredient: FORMOTEROL FUMARATE
Strength: 0.012MG/INH **Federal Register determination that product was not discontinued or withdrawn for safety or effectiveness reasons**
Dosage Form/Route: POWDER;INHALATION
Application: N020831 | Product #001
Applicant: NOVARTIS PHARMACEUTICALS CORP
Approved: Feb 16, 2001 | RLD: Yes | RS: No | Type: DISCN